FAERS Safety Report 7184155-4 (Version None)
Quarter: 2010Q4

REPORT INFORMATION
  Report Type: 
  Country: None (occurrence: None)
  Receive Date: 20101222
  Receipt Date: 20101213
  Transmission Date: 20110411
  Serious: Yes (Other)
  Sender: FDA-Public Use
  Company Number: TR-ABBOTT-10P-161-0691219-00

PATIENT
  Sex: Female
  Weight: 57 kg

DRUGS (1)
  1. LUCRIN [Suspect]
     Indication: PRECOCIOUS PUBERTY
     Dosage: HAS HAD 15 INJECTIONS
     Route: 030
     Dates: end: 20101104

REACTIONS (1)
  - VISUAL IMPAIRMENT [None]
